FAERS Safety Report 5240773-1 (Version None)
Quarter: 2007Q1

REPORT INFORMATION
  Report Type: 
  Country: None (occurrence: None)
  Receive Date: 20070219
  Receipt Date: 20070206
  Transmission Date: 20070707
  Serious: Yes (Other)
  Sender: FDA-Public Use
  Company Number: US-ELI_LILLY_AND_COMPANY-US200702001029

PATIENT
  Age: 69 Year
  Sex: Male

DRUGS (2)
  1. STRATTERA [Suspect]
     Indication: ADVERSE DRUG REACTION
     Dosage: UNK MG, UNK
  2. LEXAPRO [Concomitant]

REACTIONS (3)
  - NERVE INJURY [None]
  - ORTHOSTATIC HYPOTENSION [None]
  - TONGUE NEOPLASM MALIGNANT STAGE UNSPECIFIED [None]
